FAERS Safety Report 4667976-9 (Version None)
Quarter: 2005Q2

REPORT INFORMATION
  Report Type: 
  Country: None (occurrence: None)
  Receive Date: 20050520
  Receipt Date: 20050512
  Transmission Date: 20051028
  Serious: Yes (Other)
  Sender: FDA-Public Use
  Company Number: US-KINGPHARMUSA00001-K200500629

PATIENT
  Age: 21 Year
  Sex: Female

DRUGS (13)
  1. SEPTRA IV INFUSION [Suspect]
     Dosage: UNK, TID
     Route: 042
  2. ACETAMINOPHEN [Concomitant]
  3. DIMENHYDRINATE [Concomitant]
  4. FLUCONAZOLE [Concomitant]
  5. HYDROMORPHONE HYDROCHLORIDE [Concomitant]
  6. IBUPROFEN [Concomitant]
  7. LORAZEPAM [Concomitant]
  8. PROCHLORPERAZINE [Concomitant]
  9. RANITIDINE HYDROCHLORIDE [Concomitant]
  10. RISPERIDONE [Concomitant]
  11. SODIUM CHLORIDE [Concomitant]
  12. TINZAPARIN [Concomitant]
  13. TPN [Concomitant]

REACTIONS (7)
  - BLOOD CREATININE INCREASED [None]
  - BLOOD UREA INCREASED [None]
  - METABOLIC ACIDOSIS [None]
  - OEDEMA [None]
  - OLIGURIA [None]
  - RENAL FAILURE ACUTE [None]
  - RENAL TUBULAR NECROSIS [None]
